FAERS Safety Report 4878561-8 (Version None)
Quarter: 2006Q1

REPORT INFORMATION
  Report Type: 
  Country: None (occurrence: None)
  Receive Date: 20060110
  Receipt Date: 20051227
  Transmission Date: 20060701
  Serious: Yes (Hospitalization)
  Sender: FDA-Public Use
  Company Number: 2005PV005336

PATIENT
  Age: 47 Year
  Sex: Male
  Weight: 155.5838 kg

DRUGS (12)
  1. BYETTA [Suspect]
     Indication: DIABETES MELLITUS NON-INSULIN-DEPENDENT
     Dosage: SEE IMAGE
     Route: 058
     Dates: start: 20050708, end: 20051201
  2. BYETTA [Suspect]
     Indication: DIABETES MELLITUS NON-INSULIN-DEPENDENT
     Dosage: SEE IMAGE
     Route: 058
     Dates: start: 20051201
  3. ETHMOZINE [Suspect]
     Indication: ATRIAL FLUTTER
     Dates: end: 20051101
  4. ETHMOZINE [Suspect]
     Indication: HEART RATE IRREGULAR
     Dates: end: 20051101
  5. METFORMIN HCL [Concomitant]
  6. ETHNOMVINE [Concomitant]
  7. AMIODARONE HCL [Concomitant]
  8. VITAMINS [Concomitant]
  9. EFFEXOR [Concomitant]
  10. LASIX [Concomitant]
  11. COUMADIN [Concomitant]
  12. OXYGEN [Concomitant]

REACTIONS (14)
  - ASTHENIA [None]
  - ATRIAL FIBRILLATION [None]
  - ATRIAL FLUTTER [None]
  - BREATH SOUNDS ABNORMAL [None]
  - DECREASED ACTIVITY [None]
  - DIZZINESS [None]
  - DYSPNOEA [None]
  - FATIGUE [None]
  - HEART RATE INCREASED [None]
  - HEART RATE IRREGULAR [None]
  - OEDEMA PERIPHERAL [None]
  - RESPIRATORY DISTRESS [None]
  - THERAPY NON-RESPONDER [None]
  - WEIGHT DECREASED [None]
